FAERS Safety Report 9709017 (Version 2)
Quarter: 2014Q2

REPORT INFORMATION
  Report Type: Spontaneous
  Country: CH (occurrence: CH)
  Receive Date: 20131125
  Receipt Date: 20140429
  Transmission Date: 20141212
  Serious: Yes (Death, Other)
  Sender: FDA-Public Use
  Company Number: PHHY2013CH134003

PATIENT
  Age: 79 Year
  Sex: Female

DRUGS (6)
  1. HYDROCORTISONE [Suspect]
     Dosage: 100 MG, UNK
     Route: 042
  2. HYDROCORTISONE [Suspect]
     Dosage: 25 MG, UNK
     Route: 042
  3. MEROPENEM [Suspect]
     Dosage: 6 G, (3X2 G)
  4. VANCOMYCIN [Suspect]
     Dosage: 2 G, UNK
     Route: 042
  5. DEXAMETHASONE [Suspect]
     Dosage: 24 MG, UNK
     Route: 042
  6. AUGMENTIN [Suspect]
     Dosage: 1.2 G, UNK

REACTIONS (4)
  - Vasculitis cerebral [Fatal]
  - Brain stem syndrome [Unknown]
  - Coma [Unknown]
  - Drug ineffective [Unknown]
